FAERS Safety Report 5336781-2 (Version None)
Quarter: 2007Q2

REPORT INFORMATION
  Report Type: 
  Country: None (occurrence: None)
  Receive Date: 20070529
  Receipt Date: 20070515
  Transmission Date: 20071010
  Serious: No
  Sender: FDA-Public Use
  Company Number: PHBS2007CA04702

PATIENT
  Age: 12 Year
  Sex: Female

DRUGS (1)
  1. PAMIDRONATE DISODIUM [Suspect]
     Indication: OSTEOGENESIS IMPERFECTA
     Dosage: EVERY 4 MONTHS
     Route: 042

REACTIONS (2)
  - BONE DENSITY DECREASED [None]
  - BONE DISORDER [None]
